FAERS Safety Report 6879536-X (Version None)
Quarter: 2010Q3

REPORT INFORMATION
  Report Type: 
  Country: None (occurrence: None)
  Receive Date: 20100728
  Receipt Date: 20100712
  Transmission Date: 20110219
  Serious: Yes (Hospitalization, Other)
  Sender: FDA-Public Use
  Company Number: PHHY2010FR45173

PATIENT
  Age: 45 Year
  Sex: Male

DRUGS (7)
  1. LEPONEX [Suspect]
     Indication: SCHIZOPHRENIA
     Dosage: 800 MG, UNK
  2. NOCTRAN [Concomitant]
  3. DEPAKENE [Concomitant]
  4. AKINETON [Concomitant]
  5. LEPTICUR [Concomitant]
  6. DI-ANTALVIC [Concomitant]
  7. DUPHALAC [Concomitant]

REACTIONS (6)
  - ALCOHOLISM [None]
  - EPILEPSY [None]
  - MANIA [None]
  - NEUTROPHIL COUNT INCREASED [None]
  - RED BLOOD CELL COUNT DECREASED [None]
  - WHITE BLOOD CELL COUNT INCREASED [None]
